FAERS Safety Report 11338230 (Version 1)
Quarter: 2015Q3

REPORT INFORMATION
  Report Type: Spontaneous
  Country: US (occurrence: US)
  Receive Date: 20150803
  Receipt Date: 20150803
  Transmission Date: 20151125
  Serious: No
  Sender: FDA-Public Use
  Company Number: US-ELI_LILLY_AND_COMPANY-US200604002678

PATIENT
  Age: 12 Year
  Sex: Male
  Weight: 74.83 kg

DRUGS (3)
  1. DEXEDRINE ^MEDEVA^ [Concomitant]
     Dosage: 2 TABLETS
     Dates: start: 20041115
  2. STRATTERA [Suspect]
     Active Substance: ATOMOXETINE HYDROCHLORIDE
     Indication: ATTENTION DEFICIT/HYPERACTIVITY DISORDER
     Dosage: 40 MG, 2/D
     Route: 048
     Dates: start: 20041115, end: 20060206
  3. DEXEDRINE ^MEDEVA^ [Concomitant]
     Dosage: UNK MG, UNK
     Dates: start: 1997

REACTIONS (4)
  - Nausea [Unknown]
  - Abdominal pain [Unknown]
  - Hepatic enzyme abnormal [Recovered/Resolved]
  - Vomiting [Unknown]

NARRATIVE: CASE EVENT DATE: 20060120
